FAERS Safety Report 16861850 (Version 1)
Quarter: 2019Q3

REPORT INFORMATION
  Report Type: Spontaneous
  Country: US (occurrence: US)
  Receive Date: 20190927
  Receipt Date: 20190927
  Transmission Date: 20191005
  Serious: No
  Sender: FDA-Public Use
  Company Number: US-009507513-1909USA014244

PATIENT
  Age: 32 Year
  Sex: Female

DRUGS (4)
  1. MENOTROPINS [Concomitant]
     Active Substance: MENOTROPINS
     Indication: CONTROLLED OVARIAN STIMULATION
     Dosage: TOTAL DOSE 1050 IU
  2. MENOTROPINS [Concomitant]
     Active Substance: MENOTROPINS
     Indication: IN VITRO FERTILISATION
  3. FOLLISTIM [Suspect]
     Active Substance: FOLLITROPIN
     Indication: CONTROLLED OVARIAN STIMULATION
     Dosage: TOTAL DOSE 1425 IU
  4. FOLLISTIM [Suspect]
     Active Substance: FOLLITROPIN
     Indication: IN VITRO FERTILISATION

REACTIONS (1)
  - Maternal exposure before pregnancy [Recovered/Resolved]
